FAERS Safety Report 6023214-6 (Version None)
Quarter: 2008Q4

REPORT INFORMATION
  Report Type: 
  Country: None (occurrence: None)
  Receive Date: 20081223
  Receipt Date: 20081211
  Transmission Date: 20090506
  Serious: Yes (Death, Life-Threatening, Hospitalization)
  Sender: FDA-Public Use
  Company Number: 2008003235

PATIENT
  Age: 65 Year
  Sex: Male

DRUGS (1)
  1. ERLOTINIB (ERLOTINIB) (TABLET) (ERLOTINIB) [Suspect]
     Indication: COLORECTAL CANCER METASTATIC
     Dosage: (25 MG, QD), ORAL
     Route: 048
     Dates: start: 20080908, end: 20081129

REACTIONS (6)
  - ABDOMINAL DISTENSION [None]
  - CARDIAC ARREST [None]
  - DIARRHOEA [None]
  - DYSPNOEA [None]
  - HAEMATEMESIS [None]
  - METABOLIC ACIDOSIS [None]
